FAERS Safety Report 7218952-3 (Version None)
Quarter: 2011Q1

REPORT INFORMATION
  Report Type: 
  Country: None (occurrence: None)
  Receive Date: 20110111
  Receipt Date: 20101230
  Transmission Date: 20110831
  Serious: Yes (Death, Hospitalization)
  Sender: FDA-Public Use
  Company Number: US-BIOGENIDEC-2010BI038523

PATIENT
  Age: 48 Year
  Sex: Female
  Weight: 60 kg

DRUGS (29)
  1. LANTUS [Concomitant]
     Indication: TYPE 1 DIABETES MELLITUS
  2. ASPIRIN [Concomitant]
  3. ADDERALL 10 [Concomitant]
  4. DULCOLAX [Concomitant]
  5. LIDODERM [Concomitant]
     Route: 062
  6. CLONIDINE [Concomitant]
     Route: 062
  7. OXYCONTIN [Concomitant]
  8. TYSABRI [Suspect]
     Indication: MULTIPLE SCLEROSIS
     Route: 042
     Dates: start: 20070228, end: 20100713
  9. ASCORBIC ACID [Concomitant]
  10. VITAMIN D3 [Concomitant]
  11. COMBIVENT [Concomitant]
     Route: 055
  12. ATIVAN [Concomitant]
  13. ZINC SULFATE [Concomitant]
  14. NOVOLOG [Concomitant]
     Indication: TYPE 1 DIABETES MELLITUS
  15. BACLOFEN [Concomitant]
  16. COLACE [Concomitant]
  17. MIRALAX [Concomitant]
  18. MULTI-VITAMIN [Concomitant]
  19. OXYCODONE [Concomitant]
  20. PROTONIX [Concomitant]
  21. VITAMIN B COMPLEX [Concomitant]
  22. AMITRIPTYLINE [Concomitant]
  23. TIZANIDINE HCL [Concomitant]
  24. COPAXONE [Concomitant]
     Indication: MULTIPLE SCLEROSIS
     Dates: start: 20060703, end: 20071228
  25. DIAZEPAM [Concomitant]
  26. PROZAC [Concomitant]
  27. MICONAZOLE NITRATE [Concomitant]
  28. OXYCONTIN [Concomitant]
  29. LYRICA [Concomitant]

REACTIONS (3)
  - PYELONEPHRITIS [None]
  - URINARY TRACT INFECTION [None]
  - DIABETIC COMPLICATION [None]
